FAERS Safety Report 21935134 (Version 1)
Quarter: 2023Q1

REPORT INFORMATION
  Report Type: Spontaneous
  Country: US (occurrence: US)
  Receive Date: 20230201
  Receipt Date: 20230201
  Transmission Date: 20230418
  Serious: No
  Sender: FDA-Public Use
  Company Number: US-BAYER-2023A001967

PATIENT
  Age: 91 Year
  Sex: Male

DRUGS (3)
  1. MIRALAX [Suspect]
     Active Substance: POLYETHYLENE GLYCOL 3350
     Indication: Gastrointestinal disorder
     Dosage: 1 CAP FULL EVERYDAY AS INSTRUCTED BY DOCTOR
     Route: 048
     Dates: start: 20220912
  2. ELIQUIS [Concomitant]
     Active Substance: APIXABAN
  3. ATENOLOL [Concomitant]
     Active Substance: ATENOLOL

REACTIONS (1)
  - Skin erosion [Not Recovered/Not Resolved]
